FAERS Safety Report 6643625-5 (Version None)
Quarter: 2010Q1

REPORT INFORMATION
  Report Type: 
  Country: None (occurrence: None)
  Receive Date: 20100320
  Receipt Date: 20100304
  Transmission Date: 20100710
  Serious: Yes (Other)
  Sender: FDA-Public Use
  Company Number: US-JNJFOC-20100302954

PATIENT
  Sex: Female

DRUGS (2)
  1. RAZADYNE [Suspect]
     Indication: SLEEP DISORDER
     Route: 048
  2. RAZADYNE [Suspect]
     Route: 048

REACTIONS (26)
  - AKATHISIA [None]
  - CONFUSIONAL STATE [None]
  - DEMENTIA [None]
  - DIZZINESS [None]
  - DRUG DISPENSING ERROR [None]
  - DYSKINESIA [None]
  - DYSTONIA [None]
  - ENCEPHALITIS [None]
  - ENCEPHALOPATHY [None]
  - EXTRAPYRAMIDAL DISORDER [None]
  - GASTROINTESTINAL DISORDER [None]
  - GASTROINTESTINAL INFLAMMATION [None]
  - GUILLAIN-BARRE SYNDROME [None]
  - HEADACHE [None]
  - HOT FLUSH [None]
  - IMPAIRED WORK ABILITY [None]
  - MALAISE [None]
  - MEDICATION ERROR [None]
  - MENINGITIS [None]
  - MOTOR DYSFUNCTION [None]
  - NAUSEA [None]
  - NEUROPATHY PERIPHERAL [None]
  - OFF LABEL USE [None]
  - PARKINSONISM [None]
  - TREMOR [None]
  - WRONG DRUG ADMINISTERED [None]
